FAERS Safety Report 9684736 (Version 1)
Quarter: 2013Q4

REPORT INFORMATION
  Report Type: Spontaneous
  Country: DE (occurrence: DE)
  Receive Date: 20131112
  Receipt Date: 20131112
  Transmission Date: 20140711
  Serious: Yes (Other)
  Sender: FDA-Public Use
  Company Number: DE-ASTRAZENECA-2013SE81452

PATIENT
  Age: 42 Year
  Sex: Female

DRUGS (3)
  1. SEROQUEL PROLONG [Suspect]
     Route: 048
  2. SOLIAN [Suspect]
     Route: 048
     Dates: start: 20121029, end: 20121029
  3. SOLIAN [Suspect]
     Route: 048
     Dates: start: 20121030, end: 20121121

REACTIONS (1)
  - Liver function test abnormal [Recovering/Resolving]
